FAERS Safety Report 5150570-3 (Version None)
Quarter: 2006Q4

REPORT INFORMATION
  Report Type: 
  Country: None (occurrence: None)
  Receive Date: 20061114
  Receipt Date: 20061031
  Transmission Date: 20070319
  Serious: Yes (Hospitalization, Other)
  Sender: FDA-Public Use
  Company Number: US-ELI_LILLY_AND_COMPANY-US200611001100

PATIENT
  Sex: Female

DRUGS (2)
  1. PROZAC [Suspect]
     Route: 064
     Dates: start: 20050901
  2. ZANTAC [Concomitant]
     Indication: GASTROOESOPHAGEAL REFLUX DISEASE
     Dosage: 1 MG, DAILY (1/D)

REACTIONS (12)
  - BODY TEMPERATURE FLUCTUATION [None]
  - COW'S MILK INTOLERANCE [None]
  - DRUG EXPOSURE DURING PREGNANCY [None]
  - DRUG EXPOSURE VIA BREAST MILK [None]
  - GASTROOESOPHAGEAL REFLUX DISEASE [None]
  - INFANTILE APNOEIC ATTACK [None]
  - INFANTILE COLIC [None]
  - INFANTILE SPITTING UP [None]
  - JAUNDICE [None]
  - PLACENTA PRAEVIA [None]
  - PREMATURE BABY [None]
  - SMALL FOR DATES BABY [None]
